FAERS Safety Report 5213412-3 (Version None)
Quarter: 2007Q1

REPORT INFORMATION
  Report Type: 
  Country: None (occurrence: None)
  Receive Date: 20070119
  Receipt Date: 20070109
  Transmission Date: 20070707
  Serious: Yes (Hospitalization, Other)
  Sender: FDA-Public Use
  Company Number: US-JNJFOC-20060806159

PATIENT
  Sex: Male
  Weight: 69.4 kg

DRUGS (20)
  1. REMICADE [Suspect]
     Route: 042
  2. REMICADE [Suspect]
     Route: 042
  3. REMICADE [Suspect]
     Route: 042
  4. REMICADE [Suspect]
     Indication: RHEUMATOID ARTHRITIS
     Dosage: TWO INFUSIONS/UNSPECIFIED DOSE/UNKNOWN DATES
     Route: 042
  5. METHOTREXATE [Concomitant]
     Indication: RHEUMATOID ARTHRITIS
     Route: 048
  6. ARAVA [Concomitant]
     Route: 048
  7. FOLIC ACID [Concomitant]
  8. PREDNISONE [Concomitant]
     Indication: RHEUMATOID ARTHRITIS
     Route: 048
  9. FOSAMAX [Concomitant]
     Indication: OSTEOPOROSIS
     Route: 048
  10. OXYCODONE HCL [Concomitant]
     Indication: PAIN
     Dosage: DOSE: 10/325
  11. OXYCONTIN [Concomitant]
     Indication: PAIN
     Route: 048
  12. ARTHROTEC [Concomitant]
     Dosage: 75-200 MG-MCG, 1 TAB 2 TIMES DAILY AFTER MEALS
     Route: 048
  13. LIPITOR [Concomitant]
     Route: 048
  14. ADVAIR DISKUS 100/50 [Concomitant]
  15. PROTONIX [Concomitant]
     Route: 048
  16. LEUCOVORIN CALCIUM [Concomitant]
     Route: 048
  17. TRAZODONE HCL [Concomitant]
     Route: 048
  18. CYMBALTA [Concomitant]
  19. MULTIVIT [Concomitant]
     Route: 048
  20. CALCIUM [Concomitant]
     Route: 048

REACTIONS (6)
  - DYSPHONIA [None]
  - HYPERSENSITIVITY [None]
  - LARYNGITIS [None]
  - PHARYNGEAL NEOPLASM [None]
  - PNEUMONIA [None]
  - WEIGHT DECREASED [None]
